FAERS Safety Report 12692207 (Version 3)
Quarter: 2016Q4

REPORT INFORMATION
  Report Type: Spontaneous
  Country: US (occurrence: US)
  Receive Date: 20160828
  Receipt Date: 20161021
  Transmission Date: 20170207
  Serious: Yes (Life-Threatening, Hospitalization)
  Sender: FDA-Public Use
  Company Number: PHEH2016US021148

PATIENT
  Age: 63 Year
  Sex: Female
  Weight: 60.32 kg

DRUGS (1)
  1. COSENTYX [Suspect]
     Active Substance: SECUKINUMAB
     Indication: PSORIASIS
     Dosage: 300 MG, UNK
     Route: 058
     Dates: start: 201605, end: 201608

REACTIONS (2)
  - Pharyngeal abscess [Recovered/Resolved]
  - Mediastinitis [Recovered/Resolved]

NARRATIVE: CASE EVENT DATE: 20160705
